FAERS Safety Report 7866725-0 (Version None)
Quarter: 2011Q4

REPORT INFORMATION
  Report Type: 
  Country: None (occurrence: None)
  Receive Date: 20111028
  Receipt Date: 20110808
  Transmission Date: 20120403
  Serious: No
  Sender: FDA-Public Use
  Company Number: US-GLAXOSMITHKLINE-A0940085A

PATIENT
  Age: 25 Year
  Sex: Female

DRUGS (11)
  1. IMITREX [Concomitant]
  2. ADVAIR DISKUS 100/50 [Suspect]
     Indication: ASTHMA
     Dosage: 1PUFF TWICE PER DAY
     Route: 055
     Dates: start: 20010401
  3. XYLOL [Concomitant]
  4. UNSPECIFIED MEDICATION [Concomitant]
  5. LACTASE [Concomitant]
  6. ALLERGY INJECTION [Concomitant]
  7. LOESTRIN 1.5/30 [Concomitant]
  8. CALCIUM CARBONATE [Concomitant]
  9. PRISTIQ [Concomitant]
  10. MULTI-VITAMIN [Concomitant]
  11. PROBIOTICS [Concomitant]

REACTIONS (5)
  - DYSPNOEA [None]
  - CHEST DISCOMFORT [None]
  - COUGH [None]
  - INCORRECT DOSE ADMINISTERED BY DEVICE [None]
  - PRODUCT QUALITY ISSUE [None]
